FAERS Safety Report 26191015 (Version 1)
Quarter: 2025Q4

REPORT INFORMATION
  Report Type: Spontaneous
  Country: US (occurrence: None)
  Receive Date: 20251222
  Receipt Date: 20251222
  Transmission Date: 20260118
  Serious: No
  Sender: FDA-CTU
  Company Number: None

PATIENT
  Age: 75 Year
  Sex: Male
  Weight: 105.3 kg

DRUGS (11)
  1. TRIAMCINOLONE [Suspect]
     Active Substance: TRIAMCINOLONE
     Indication: Pruritus
  2. TRIAMCINOLONE [Suspect]
     Active Substance: TRIAMCINOLONE
     Indication: Swelling
  3. AMLODIPINE [Concomitant]
     Active Substance: AMLODIPINE BESYLATE
  4. GARLIC [Concomitant]
     Active Substance: GARLIC
  5. C [Concomitant]
  6. COD LIVER OIL [Concomitant]
     Active Substance: COD LIVER OIL
  7. CINNAMON [Concomitant]
     Active Substance: CINNAMON
  8. APPLE CIDER VINEGAR [Concomitant]
     Active Substance: APPLE CIDER VINEGAR
  9. D 3 [Concomitant]
  10. Termeric [Concomitant]
  11. GINGER [Concomitant]
     Active Substance: GINGER

REACTIONS (2)
  - Dizziness [None]
  - Gait disturbance [None]

NARRATIVE: CASE EVENT DATE: 20251222
